FAERS Safety Report 25253647 (Version 1)
Quarter: 2025Q2

REPORT INFORMATION
  Report Type: Spontaneous
  Country: US (occurrence: US)
  Receive Date: 20250430
  Receipt Date: 20250430
  Transmission Date: 20250717
  Serious: No
  Sender: ROCHE
  Company Number: US-ROCHE-10000268831

PATIENT
  Age: 29 Year
  Sex: Female
  Weight: 57.87 kg

DRUGS (1)
  1. XOLAIR [Suspect]
     Active Substance: OMALIZUMAB
     Indication: Chronic spontaneous urticaria
     Dosage: 2 DOSES OF 75 MG SUBCUTANEOUS ONE ON EACH ARM
     Route: 058
     Dates: start: 20250422

REACTIONS (13)
  - Urticaria [Recovered/Resolved]
  - Syncope [Recovered/Resolved]
  - Vomiting [Recovered/Resolved]
  - Nausea [Recovered/Resolved]
  - Dizziness [Recovered/Resolved]
  - Asthenia [Recovered/Resolved]
  - Malaise [Recovered/Resolved]
  - Pain of skin [Unknown]
  - Feeling of body temperature change [Unknown]
  - Headache [Unknown]
  - Photopsia [Unknown]
  - Facial pain [Unknown]
  - Loss of consciousness [Unknown]

NARRATIVE: CASE EVENT DATE: 20250422
